FAERS Safety Report 21993556 (Version 1)
Quarter: 2023Q1

REPORT INFORMATION
  Report Type: Spontaneous
  Country: GB (occurrence: GB)
  Receive Date: 20230215
  Receipt Date: 20230215
  Transmission Date: 20230418
  Serious: Yes (Hospitalization, Other)
  Sender: FDA-Public Use
  Company Number: None

PATIENT
  Age: 39 Year
  Sex: Female

DRUGS (7)
  1. ATROPINE SULFATE [Suspect]
     Active Substance: ATROPINE SULFATE
     Indication: Cholinergic syndrome
     Dosage: 0.25MG S/C INJECTION PRN
     Route: 058
  2. OXALIPLATIN [Suspect]
     Active Substance: OXALIPLATIN
     Indication: Product used for unknown indication
     Dosage: 200 MG IN 250ML OF GLUCOSE VIA IV INFUSION OVER 2 HOURS
     Route: 042
  3. NETUPITANT\PALONOSETRON HYDROCHLORIDE [Suspect]
     Active Substance: NETUPITANT\PALONOSETRON HYDROCHLORIDE
     Indication: Product used for unknown indication
     Dosage: STRENGTH: 300MG, 0.5MG, AS A SINGLE DOSE
     Route: 048
     Dates: start: 20230123
  4. DEXAMETHASONE [Suspect]
     Active Substance: DEXAMETHASONE
     Indication: Product used for unknown indication
     Dosage: 2MG TABLET SINGLE DOSE
     Dates: start: 20230123
  5. LEUCOVORIN [Concomitant]
     Active Substance: LEUCOVORIN
     Dosage: 700 MG IN 250ML GLUCOSE VIA IV INFUSION OVER 2 HOURS
     Route: 042
  6. IRINOTECAN [Concomitant]
     Active Substance: IRINOTECAN
     Dosage: 360 MG IN 250 ML GLUCOSE VIA IV INFUSION OVER 90 MINS
     Route: 042
  7. FLUOROURACIL [Concomitant]
     Active Substance: FLUOROURACIL
     Dosage: 5650 MG CONTINUOUS IV INFUSION OVER 46 HOURS
     Route: 042

REACTIONS (2)
  - Colitis [Recovering/Resolving]
  - Neutropenic sepsis [Recovering/Resolving]

NARRATIVE: CASE EVENT DATE: 20230123
